FAERS Safety Report 6177115-3 (Version None)
Quarter: 2009Q2

REPORT INFORMATION
  Report Type: 
  Country: None (occurrence: None)
  Receive Date: 20090430
  Receipt Date: 20090430
  Transmission Date: 20091009
  Serious: Yes (Hospitalization)
  Sender: FDA-Public Use
  Company Number: None

PATIENT
  Age: 89 Year
  Sex: Male

DRUGS (1)
  1. WARFARIN SODIUM [Suspect]
     Indication: THROMBOSIS PROPHYLAXIS
     Dosage: WARFARIN 5 MG DAILY PO
     Route: 048
     Dates: start: 20081222, end: 20090105

REACTIONS (9)
  - COAGULOPATHY [None]
  - CONTUSION [None]
  - DECREASED APPETITE [None]
  - FALL [None]
  - HYPOPHAGIA [None]
  - INTERNATIONAL NORMALISED RATIO INCREASED [None]
  - RECTAL HAEMORRHAGE [None]
  - VITAMIN K DEFICIENCY [None]
  - VOMITING [None]
